FAERS Safety Report 22855303 (Version 2)
Quarter: 2024Q3

REPORT INFORMATION
  Report Type: Spontaneous
  Country: US (occurrence: US)
  Receive Date: 20230823
  Receipt Date: 20240830
  Transmission Date: 20241016
  Serious: No
  Sender: ENDO
  Company Number: ENDG23-00624

PATIENT
  Sex: Female
  Weight: 83.91 kg

DRUGS (9)
  1. PREDNISONE [Suspect]
     Active Substance: PREDNISONE
     Indication: Drug hypersensitivity
     Dosage: 5 MG, UNKNOWN
     Route: 065
     Dates: start: 20221122
  2. PREDNISONE [Suspect]
     Active Substance: PREDNISONE
     Dosage: 20 MG, UNKNOWN (TO TAKE 2 BY MOUTH FOR 6 DAYS)
     Route: 048
     Dates: start: 20221221
  3. PREDNISONE [Suspect]
     Active Substance: PREDNISONE
     Dosage: 20 MG, UNKNOWN (TO TAKE 2 TABLETS BY MOUTH FOR 3 DAYS)
     Route: 048
     Dates: start: 20221231, end: 2023
  4. PENICILLIN [Suspect]
     Active Substance: PENICILLIN
     Indication: Drug hypersensitivity
     Dosage: UNK UNKNOWN, UNKNOWN
     Route: 065
  5. DICLOFENAC [Suspect]
     Active Substance: DICLOFENAC
     Indication: Drug hypersensitivity
     Dosage: UNK UNKNOWN, UNKNOWN
     Route: 065
  6. DECADRON [Suspect]
     Active Substance: DEXAMETHASONE
     Indication: Drug hypersensitivity
     Dosage: UNK UNKNOWN, UNKNOWN
     Route: 065
  7. VICKS VAPORUB [Suspect]
     Active Substance: CAMPHOR (SYNTHETIC)\EUCALYPTUS OIL\MENTHOL
     Indication: Drug hypersensitivity
     Dosage: UNK UNKNOWN, UNKNOWN
     Route: 065
  8. HYDROXYZINE HYDROCHLORIDE [Concomitant]
     Active Substance: HYDROXYZINE HYDROCHLORIDE
     Indication: Drug hypersensitivity
     Dosage: 25 MG, UNKNOWN
     Route: 065
     Dates: start: 20221205
  9. HYDROXYZINE HYDROCHLORIDE [Concomitant]
     Active Substance: HYDROXYZINE HYDROCHLORIDE
     Dosage: 50 MG, UNKNOWN
     Route: 065
     Dates: start: 20221221

REACTIONS (1)
  - Drug ineffective [Unknown]

NARRATIVE: CASE EVENT DATE: 20220101
